FAERS Safety Report 20004308 (Version 1)
Quarter: 2021Q4

REPORT INFORMATION
  Report Type: Spontaneous
  Country: CA (occurrence: CA)
  Receive Date: 20211028
  Receipt Date: 20211028
  Transmission Date: 20220303
  Serious: Yes (Other)
  Sender: FDA-Public Use
  Company Number: 2021A781229

PATIENT
  Age: 62 Year
  Sex: Female

DRUGS (2)
  1. DURVALUMAB [Suspect]
     Active Substance: DURVALUMAB
     Indication: Squamous cell carcinoma
     Route: 042
  2. CELECOXIB [Suspect]
     Active Substance: CELECOXIB
     Route: 065

REACTIONS (1)
  - Pemphigoid [Unknown]
